FAERS Safety Report 20394395 (Version 1)
Quarter: 2022Q1

REPORT INFORMATION
  Report Type: Spontaneous
  Country: US (occurrence: US)
  Receive Date: 20220129
  Receipt Date: 20220129
  Transmission Date: 20220423
  Serious: Yes (Hospitalization, Other)
  Sender: FDA-Public Use
  Company Number: US-drreddys-SPO/USA/22/0146281

PATIENT
  Age: 65 Year
  Sex: Male

DRUGS (4)
  1. CEFAZOLIN [Suspect]
     Active Substance: CEFAZOLIN
     Indication: Prophylaxis
  2. CEFAZOLIN [Suspect]
     Active Substance: CEFAZOLIN
     Dosage: RE-DOSED EVERY 4 HOURS
  3. CEFAZOLIN [Suspect]
     Active Substance: CEFAZOLIN
     Dosage: CONTINUED FOR 24 HOURS POSTOPERATIVELY
  4. ASPIRIN [Concomitant]
     Active Substance: ASPIRIN
     Indication: Prophylaxis

REACTIONS (2)
  - Coagulopathy [Recovered/Resolved]
  - Thrombocytopenia [Recovered/Resolved]
